FAERS Safety Report 8169430 (Version 2)
Quarter: 2013Q3

REPORT INFORMATION
  Report Type: Report from Study
  Country: CZ (occurrence: CZ)
  Receive Date: 20111005
  Receipt Date: 20130709
  Transmission Date: 20140515
  Serious: Yes (Other)
  Sender: FDA-Public Use
  Company Number: CZ-BAYER-2011-094286

PATIENT
  Age: 65 Year
  Sex: Male

DRUGS (1)
  1. NEXAVAR [Suspect]
     Indication: RENAL CANCER
     Dosage: 400 MG,QD
     Route: 048
     Dates: start: 20110302, end: 20110531

REACTIONS (2)
  - Azotaemia [Unknown]
  - Hypertension [Unknown]
